FAERS Safety Report 19695631 (Version 1)
Quarter: 2021Q3

REPORT INFORMATION
  Report Type: Spontaneous
  Country: US (occurrence: US)
  Receive Date: 20210812
  Receipt Date: 20210812
  Transmission Date: 20211014
  Serious: Yes (Disabling)
  Sender: FDA-Public Use
  Company Number: None

PATIENT
  Age: 67 Year
  Sex: Female
  Weight: 58.5 kg

DRUGS (16)
  1. MULTI VITS [Concomitant]
     Active Substance: VITAMINS
  2. PREGABALIN. [Suspect]
     Active Substance: PREGABALIN
     Indication: NEURALGIA
     Dosage: ?          QUANTITY:90 CAPSULE(S);?
     Route: 048
     Dates: start: 20210602, end: 20210729
  3. PROLIA [Concomitant]
     Active Substance: DENOSUMAB
  4. METHYLPHENIDATE. [Concomitant]
     Active Substance: METHYLPHENIDATE
  5. COPAXONE [Concomitant]
     Active Substance: GLATIRAMER ACETATE
  6. ROSUVASTATIN. [Concomitant]
     Active Substance: ROSUVASTATIN
  7. ASA [Concomitant]
     Active Substance: ASPIRIN
  8. FLAX SEED MEAL [Concomitant]
  9. DULOXETINE. [Concomitant]
     Active Substance: DULOXETINE
  10. VITAMIN D3 [Concomitant]
     Active Substance: CHOLECALCIFEROL
  11. MELATONIN [Concomitant]
     Active Substance: MELATONIN
  12. BACLOFEN. [Concomitant]
     Active Substance: BACLOFEN
  13. ERGOCALCIFEROL. [Concomitant]
     Active Substance: ERGOCALCIFEROL
  14. VITAMIN B?COMPLEX [Concomitant]
     Active Substance: DEXPANTHENOL\NIACINAMIDE\PYRIDOXINE HYDROCHLORIDE\RIBOFLAVIN 5^-PHOSPHATE SODIUM\THIAMINE HYDROCHLORIDE
  15. AMLODIPINE [Concomitant]
     Active Substance: AMLODIPINE BESYLATE
  16. IRON [Concomitant]
     Active Substance: IRON

REACTIONS (2)
  - Weight increased [None]
  - Dizziness [None]

NARRATIVE: CASE EVENT DATE: 20210728
